FAERS Safety Report 6309272-X (Version None)
Quarter: 2009Q3

REPORT INFORMATION
  Report Type: 
  Country: None (occurrence: None)
  Receive Date: 20090811
  Receipt Date: 20090731
  Transmission Date: 20100115
  Serious: Yes (Other)
  Sender: FDA-Public Use
  Company Number: ADE2009-0778

PATIENT
  Age: 52 Year
  Sex: Male
  Weight: 107.95 kg

DRUGS (6)
  1. MIRTAZAPINE [Suspect]
     Indication: DEPRESSION
     Dosage: 30MG, ORAL
     Route: 048
     Dates: start: 20081101, end: 20081231
  2. FLUOXETINE [Suspect]
     Indication: DEPRESSION
     Dosage: 20MG, ORAL
     Route: 048
     Dates: start: 20080405
  3. RAMIPRIL [Concomitant]
  4. VERAPAMIL [Concomitant]
  5. DIAZEPAM [Concomitant]
  6. TEMAZEPAM [Concomitant]

REACTIONS (5)
  - CARDIAC FAILURE [None]
  - CELLULITIS [None]
  - DEEP VEIN THROMBOSIS [None]
  - GAIT DISTURBANCE [None]
  - OEDEMA PERIPHERAL [None]
